FAERS Safety Report 8120610-8 (Version None)
Quarter: 2012Q1

REPORT INFORMATION
  Report Type: 
  Country: None (occurrence: None)
  Receive Date: 20120207
  Receipt Date: 20120203
  Transmission Date: 20120608
  Serious: Yes (Other)
  Sender: FDA-Public Use
  Company Number: US-ALLERGAN-1116660US

PATIENT
  Age: 38 Year

DRUGS (4)
  1. CELLUVISC [Suspect]
     Indication: POSTOPERATIVE CARE
     Dosage: UNK
     Route: 047
     Dates: start: 20111208
  2. ACUVAIL [Suspect]
     Indication: POSTOPERATIVE CARE
     Dosage: UNK
     Route: 047
     Dates: start: 20111208
  3. PRED FORTE [Suspect]
     Indication: POSTOPERATIVE CARE
     Dosage: UNK
     Route: 047
     Dates: start: 20111208
  4. ZYMAXID [Suspect]
     Indication: POSTOPERATIVE CARE
     Dosage: UNK
     Route: 047
     Dates: start: 20111208

REACTIONS (5)
  - CONDITION AGGRAVATED [None]
  - ADVERSE DRUG REACTION [None]
  - CORNEAL OPACITY [None]
  - DIFFUSE LAMELLAR KERATITIS [None]
  - BLINDNESS [None]
